FAERS Safety Report 5165477-5 (Version None)
Quarter: 2006Q4

REPORT INFORMATION
  Report Type: 
  Country: None (occurrence: None)
  Receive Date: 20061206
  Receipt Date: 20061206
  Transmission Date: 20070319
  Serious: Yes (Death)
  Sender: FDA-Public Use
  Company Number: None

PATIENT
  Age: 4 Month
  Sex: Male
  Weight: 7.2576 kg

DRUGS (5)
  1. INFANT'S TYLENOL PLUS COLD [Suspect]
     Indication: COUGH
  2. INFANT'S TYLENOL PLUS COLD [Suspect]
     Indication: NASOPHARYNGITIS
  3. CARBAXEFED DN RF [Suspect]
     Indication: COUGH
  4. CARBAXEFED DN RF [Suspect]
     Indication: NASOPHARYNGITIS
  5. PHENOBARBITAL TAB [Concomitant]

REACTIONS (4)
  - ANOXIC ENCEPHALOPATHY [None]
  - DRUG TOXICITY [None]
  - LOSS OF CONSCIOUSNESS [None]
  - RESPIRATORY ARREST [None]
